FAERS Safety Report 22624797 (Version 1)
Quarter: 2023Q2

REPORT INFORMATION
  Report Type: Spontaneous
  Country: US (occurrence: US)
  Receive Date: 20230621
  Receipt Date: 20230621
  Transmission Date: 20230721
  Serious: Yes (Other)
  Sender: FDA-Public Use
  Company Number: US-ABBVIE-5295856

PATIENT
  Sex: Female

DRUGS (5)
  1. CELEXA [Suspect]
     Active Substance: CITALOPRAM HYDROBROMIDE
     Indication: Product used for unknown indication
     Route: 065
  2. GABAPENTIN [Concomitant]
     Active Substance: GABAPENTIN
     Indication: Product used for unknown indication
  3. Miripex [Concomitant]
     Indication: Product used for unknown indication
  4. OXYCODONE [Concomitant]
     Active Substance: OXYCODONE
     Indication: Product used for unknown indication
  5. PROTONIX [Concomitant]
     Active Substance: PANTOPRAZOLE SODIUM
     Indication: Product used for unknown indication

REACTIONS (13)
  - Multiple sclerosis [Unknown]
  - Crying [Unknown]
  - Gastrooesophageal reflux disease [Unknown]
  - Intervertebral disc degeneration [Unknown]
  - Radiculopathy [Unknown]
  - Balance disorder [Unknown]
  - Hemiparesis [Unknown]
  - Neuralgia [Unknown]
  - Fall [Unknown]
  - Gait disturbance [Unknown]
  - Restless legs syndrome [Unknown]
  - Anxiety [Unknown]
  - Sciatic nerve injury [Unknown]
